FAERS Safety Report 8255028-0 (Version None)
Quarter: 2012Q2

REPORT INFORMATION
  Report Type: 
  Country: None (occurrence: None)
  Receive Date: 20120403
  Receipt Date: 20120327
  Transmission Date: 20120825
  Serious: No
  Sender: FDA-Public Use
  Company Number: US-BAYER-2012-031893

PATIENT
  Sex: Male

DRUGS (1)
  1. ALEVE (CAPLET) [Suspect]
     Dosage: 1 UNIT USED ONLY ONE TIME
     Route: 048
     Dates: start: 20120326, end: 20120326

REACTIONS (1)
  - INSOMNIA [None]
